FAERS Safety Report 5692681-X (Version None)
Quarter: 2008Q2

REPORT INFORMATION
  Report Type: 
  Country: None (occurrence: None)
  Receive Date: 20080401
  Receipt Date: 20080313
  Transmission Date: 20081010
  Serious: Yes (Hospitalization)
  Sender: FDA-Public Use
  Company Number: 2008S1004232

PATIENT
  Age: 53 Year
  Sex: Male

DRUGS (5)
  1. TICLOPIDINE HYDROCHLORIDE [Suspect]
     Indication: PROPHYLAXIS
     Dosage: 250 MG; DAILY, 250 MG; DAILY
  2. ERYTHROPOIETINS (NO PREF. NAME) [Concomitant]
  3. CARVEDILOL [Concomitant]
  4. OMEPRAZOLE [Concomitant]
  5. CALCIUM CARBONATE (CALCIUM CARBONATE) [Concomitant]

REACTIONS (7)
  - ANTINUCLEAR ANTIBODY POSITIVE [None]
  - HEPATIC FIBROSIS [None]
  - HEPATIC NECROSIS [None]
  - HEPATITIS CHOLESTATIC [None]
  - IMMUNOGLOBULINS INCREASED [None]
  - LIVER TRANSPLANT [None]
  - RENAL TRANSPLANT [None]
